FAERS Safety Report 5742575-6 (Version None)
Quarter: 2008Q2

REPORT INFORMATION
  Report Type: 
  Country: None (occurrence: None)
  Receive Date: 20080515
  Receipt Date: 20080515
  Transmission Date: 20081010
  Serious: Yes (Hospitalization)
  Sender: FDA-Public Use
  Company Number: None

PATIENT
  Age: 75 Year
  Sex: Male
  Weight: 90.7194 kg

DRUGS (1)
  1. VYTORIN [Suspect]
     Indication: BLOOD CHOLESTEROL
     Dosage: 1 / DAY
     Dates: start: 20060301

REACTIONS (3)
  - ABDOMINAL PAIN UPPER [None]
  - PANCREATITIS [None]
  - WEIGHT DECREASED [None]
